FAERS Safety Report 5727876-X (Version None)
Quarter: 2008Q2

REPORT INFORMATION
  Report Type: 
  Country: None (occurrence: None)
  Receive Date: 20080430
  Receipt Date: 20080416
  Transmission Date: 20081010
  Serious: Yes (Hospitalization)
  Sender: FDA-Public Use
  Company Number: 233423J08USA

PATIENT
  Age: 26 Year
  Sex: Female

DRUGS (2)
  1. REBIF [Suspect]
     Indication: MULTIPLE SCLEROSIS
     Dates: start: 20080319, end: 20080301
  2. LEXAPRO [Suspect]
     Indication: DEPRESSION
     Dates: start: 20080301, end: 20080301

REACTIONS (7)
  - ABDOMINAL PAIN [None]
  - DEHYDRATION [None]
  - DEPRESSION [None]
  - NAUSEA [None]
  - PANIC ATTACK [None]
  - RETCHING [None]
  - TREMOR [None]
